FAERS Safety Report 4953560-6 (Version None)
Quarter: 2006Q1

REPORT INFORMATION
  Report Type: 
  Country: None (occurrence: None)
  Receive Date: 20060324
  Receipt Date: 20041228
  Transmission Date: 20060701
  Serious: Yes (Hospitalization)
  Sender: FDA-Public Use
  Company Number: US-MERCK-0412USA03168

PATIENT
  Age: 67 Year
  Sex: Female

DRUGS (7)
  1. VIOXX [Suspect]
     Indication: ARTHRALGIA
     Route: 048
     Dates: start: 20010401, end: 20010401
  2. VIOXX [Suspect]
     Route: 048
     Dates: start: 20010401, end: 20040501
  3. VIOXX [Suspect]
     Indication: PAIN IN EXTREMITY
     Route: 048
     Dates: start: 20010401, end: 20010401
  4. VIOXX [Suspect]
     Route: 048
     Dates: start: 20010401, end: 20040501
  5. ESTRATEST [Concomitant]
     Route: 065
  6. PROVERA [Concomitant]
     Route: 065
  7. SYNTHROID [Concomitant]
     Route: 065

REACTIONS (10)
  - ANXIETY [None]
  - CEREBROVASCULAR ACCIDENT [None]
  - DERMATOLOGIC EXAMINATION ABNORMAL [None]
  - DRUG HYPERSENSITIVITY [None]
  - EPISTAXIS [None]
  - EYE INFLAMMATION [None]
  - HEMIANOPIA HOMONYMOUS [None]
  - HYPERLIPIDAEMIA [None]
  - HYPERTENSIVE HEART DISEASE [None]
  - SLEEP DISORDER [None]
